FAERS Safety Report 24462563 (Version 1)
Quarter: 2024Q4

REPORT INFORMATION
  Report Type: Spontaneous
  Country: DE (occurrence: DE)
  Receive Date: 20241018
  Receipt Date: 20241018
  Transmission Date: 20250115
  Serious: Yes (Other)
  Sender: GLAXOSMITHKLINE
  Company Number: None

PATIENT

DRUGS (2)
  1. ACYCLOVIR [Suspect]
     Active Substance: ACYCLOVIR
     Indication: Product used for unknown indication
     Dosage: UNK
     Route: 065
  2. VALACYCLOVIR HYDROCHLORIDE [Suspect]
     Active Substance: VALACYCLOVIR HYDROCHLORIDE
     Indication: Product used for unknown indication
     Dosage: UNK
     Route: 065

REACTIONS (9)
  - Herpes simplex pharyngitis [Unknown]
  - Social problem [Unknown]
  - Sick leave [Unknown]
  - Sensory disturbance [Unknown]
  - Depression [Unknown]
  - Genital herpes simplex [Unknown]
  - Head discomfort [Unknown]
  - Pain [Unknown]
  - Drug ineffective [Unknown]
